FAERS Safety Report 8996979 (Version 1)
Quarter: 2012Q4

REPORT INFORMATION
  Report Type: Spontaneous
  Country: US (occurrence: None)
  Receive Date: 20121231
  Receipt Date: 20121231
  Transmission Date: 20130627
  Serious: Yes (Hospitalization)
  Sender: FDA-Public Use
  Company Number: None

PATIENT
  Sex: Female
  Weight: 65.77 kg

DRUGS (6)
  1. DOXURUBICIN [Suspect]
  2. VINCRISTINE SULFATE [Suspect]
  3. CYCLOPHOSPHAMIDE [Suspect]
  4. ETOPOSIDE (VP-16) [Suspect]
  5. PREDNISONE [Suspect]
  6. RITUXIMAB (MOAB C2B8 ANTI CD20, CHIMERIC) [Suspect]

REACTIONS (4)
  - Neutropenia [None]
  - Mucosal inflammation [None]
  - Neuropathy peripheral [None]
  - Non-Hodgkin^s lymphoma [None]
